FAERS Safety Report 19606015 (Version 2)
Quarter: 2021Q3

REPORT INFORMATION
  Report Type: Report from Study
  Country: FR (occurrence: FR)
  Receive Date: 20210723
  Receipt Date: 20210729
  Transmission Date: 20211014
  Serious: Yes (Other)
  Sender: FDA-Public Use
  Company Number: FR-PFIZER INC-2021874350

PATIENT
  Age: 52 Year
  Sex: Female
  Weight: 62 kg

DRUGS (6)
  1. REVOLADE [Concomitant]
     Active Substance: ELTROMBOPAG OLAMINE
     Indication: APLASTIC ANAEMIA
     Dosage: 150 MG, DAILY
  2. CORTANCYL [Concomitant]
     Active Substance: PREDNISONE
     Dosage: 1 MG/KG, DAILY
  3. POLARAMINE [Concomitant]
     Active Substance: DEXCHLORPHENIRAMINE MALEATE
     Indication: PREMEDICATION
     Dosage: 1 AMPOULE AT H0 ? H4
  4. ATGAM [Suspect]
     Active Substance: EQUINE THYMOCYTE IMMUNE GLOBULIN
     Indication: APLASTIC ANAEMIA
     Dosage: 40 MG/KG, DAILY
     Route: 042
     Dates: start: 20200818, end: 20200821
  5. CYCLOSPORINE. [Concomitant]
     Active Substance: CYCLOSPORINE
     Indication: APLASTIC ANAEMIA
     Dosage: 3 MG/KG, DAILY
     Route: 042
  6. PERFALGAN [Concomitant]
     Active Substance: ACETAMINOPHEN
     Dosage: 1 G, SINGLE (AT H0)

REACTIONS (2)
  - Hepatitis toxic [Recovered/Resolved]
  - Treatment failure [Unknown]

NARRATIVE: CASE EVENT DATE: 20200821
